FAERS Safety Report 8809592 (Version 1)
Quarter: 2012Q4

REPORT INFORMATION
  Report Type: 
  Country: US (occurrence: US)
  Receive Date: 20120926
  Receipt Date: 20120926
  Transmission Date: 20130627
  Serious: Yes (Other)
  Sender: FDA-Public Use
  Company Number: US-ROCHE-1104130

PATIENT
  Sex: Female

DRUGS (2)
  1. AVASTIN [Suspect]
     Indication: COLON CANCER
     Route: 065
     Dates: start: 20060329, end: 20060419
  2. AVASTIN [Suspect]
     Indication: METASTASES TO LIVER

REACTIONS (2)
  - Disease progression [Unknown]
  - Toxicity to various agents [Unknown]
